FAERS Safety Report 7279183-4 (Version None)
Quarter: 2011Q1

REPORT INFORMATION
  Report Type: 
  Country: None (occurrence: None)
  Receive Date: 20110207
  Receipt Date: 20110128
  Transmission Date: 20110831
  Serious: Yes (Other)
  Sender: FDA-Public Use
  Company Number: US-PFIZER INC-2011027154

PATIENT
  Sex: Female
  Weight: 63.492 kg

DRUGS (1)
  1. XANAX [Suspect]
     Dosage: 1 MG, 4X/DAY

REACTIONS (1)
  - DRUG ABUSE [None]
